FAERS Safety Report 4968678-1 (Version None)
Quarter: 2006Q2

REPORT INFORMATION
  Report Type: 
  Country: None (occurrence: None)
  Receive Date: 20060411
  Receipt Date: 20060228
  Transmission Date: 20061013
  Serious: Yes (Disabling)
  Sender: FDA-Public Use
  Company Number: PHHO2006JP03569

PATIENT

DRUGS (11)
  1. PURSENNID [Concomitant]
     Indication: CONSTIPATION
  2. EXJADE [Suspect]
     Indication: HAEMOSIDEROSIS
     Dosage: 1000 MG, QD
     Route: 048
     Dates: start: 20051221, end: 20060116
  3. EXJADE [Suspect]
     Dosage: 500 MG, QD
     Route: 048
     Dates: start: 20060117, end: 20060214
  4. NEORAL [Concomitant]
     Indication: APLASTIC ANAEMIA
     Dosage: 160 MG, UNK
     Route: 048
  5. BONZOL [Concomitant]
     Dosage: 100 MG, UNK
     Route: 048
     Dates: end: 20060206
  6. BONZOL [Concomitant]
     Dosage: 200 MG, UNK
     Route: 048
     Dates: start: 20060207
  7. PRIMOBOLAN-DEPOT INJ [Concomitant]
     Indication: CONSTIPATION
     Route: 048
  8. KERORIN [Suspect]
     Indication: HEADACHE
     Dosage: 1 TABLET, DAILY
     Route: 048
     Dates: start: 20060114, end: 20060115
  9. NORSHIN [Suspect]
     Indication: HEADACHE
     Dosage: 1 PACK, DAILY
     Route: 048
     Dates: start: 20060110, end: 20060113
  10. NEW DICKININ [Suspect]
     Indication: HEADACHE
     Dosage: 1 PACK, DAILY
     Route: 048
     Dates: start: 20060110, end: 20060111
  11. HUMAN RED BLOOD CELLS [Concomitant]
     Dosage: 2 UNITS EVERY 4 WEEKS

REACTIONS (2)
  - BLOOD CREATININE INCREASED [None]
  - NEPHRITIS INTERSTITIAL [None]
